FAERS Safety Report 6906136-5 (Version None)
Quarter: 2010Q3

REPORT INFORMATION
  Report Type: 
  Country: None (occurrence: None)
  Receive Date: 20100803
  Receipt Date: 20100803
  Transmission Date: 20110219
  Serious: Yes (Other)
  Sender: FDA-Public Use
  Company Number: None

PATIENT
  Age: 33 Year
  Sex: Male
  Weight: 90.7194 kg

DRUGS (1)
  1. INVEGA [Suspect]
     Indication: DRUG INEFFECTIVE
     Dosage: 1 1 PO
     Route: 048
     Dates: start: 20100201, end: 20100802

REACTIONS (3)
  - COGNITIVE DISORDER [None]
  - DYSARTHRIA [None]
  - SPEECH DISORDER [None]
